FAERS Safety Report 5702375-X (Version None)
Quarter: 2008Q2

REPORT INFORMATION
  Report Type: 
  Country: None (occurrence: None)
  Receive Date: 20080411
  Receipt Date: 20080403
  Transmission Date: 20081010
  Serious: Yes (Death, Hospitalization, Other)
  Sender: FDA-Public Use
  Company Number: JP-BRISTOL-MYERS SQUIBB COMPANY-14116081

PATIENT
  Age: 73 Year
  Sex: Female

DRUGS (4)
  1. TAXOL [Suspect]
     Indication: OVARIAN CANCER
     Dosage: DOSE VALUE: 157.5 MG: UNK TO UNK 135.0MG: UNK TO UNK
     Route: 041
  2. TAXOL [Suspect]
     Indication: OVARIAN EPITHELIAL CANCER
     Dosage: DOSE VALUE: 157.5 MG: UNK TO UNK 135.0MG: UNK TO UNK
     Route: 041
  3. PARAPLATIN [Suspect]
     Indication: OVARIAN CANCER
     Dosage: DOSE: 200 MG: UNK TO UNK 120 MG: UNK TO UNK
     Route: 041
  4. PARAPLATIN [Suspect]
     Indication: OVARIAN EPITHELIAL CANCER
     Dosage: DOSE: 200 MG: UNK TO UNK 120 MG: UNK TO UNK
     Route: 041

REACTIONS (6)
  - ACUTE MEGAKARYOCYTIC LEUKAEMIA [None]
  - FEBRILE NEUTROPENIA [None]
  - MYELODYSPLASTIC SYNDROME [None]
  - PANCYTOPENIA [None]
  - RENAL FAILURE [None]
  - URINARY TRACT INFECTION [None]
